FAERS Safety Report 24111429 (Version 7)
Quarter: 2025Q2

REPORT INFORMATION
  Report Type: Report from Study
  Country: US (occurrence: US)
  Receive Date: 20240718
  Receipt Date: 20250530
  Transmission Date: 20250716
  Serious: Yes (Hospitalization, Other)
  Sender: TAKEDA
  Company Number: US-TAKEDA-2024TUS072233

PATIENT
  Age: 57 Year
  Sex: Female
  Weight: 73 kg

DRUGS (40)
  1. HUMAN IMMUNOGLOBULIN G [Suspect]
     Active Substance: HUMAN IMMUNOGLOBULIN G
     Indication: IgG deficiency
     Dosage: 28 GRAM, Q2WEEKS
     Dates: start: 20171209
  2. HUMAN IMMUNOGLOBULIN G [Suspect]
     Active Substance: HUMAN IMMUNOGLOBULIN G
     Indication: Immunodeficiency common variable
     Dosage: 28 GRAM, Q2WEEKS
     Dates: start: 20180111
  3. HUMAN IMMUNOGLOBULIN G [Suspect]
     Active Substance: HUMAN IMMUNOGLOBULIN G
     Indication: Immunodeficiency
     Dosage: 32 GRAM, Q2WEEKS
  4. HYQVIA [Suspect]
     Active Substance: HUMAN IMMUNOGLOBULIN G\HYALURONIDASE (HUMAN RECOMBINANT)
     Indication: IgG deficiency
     Dosage: 42.5 GRAM, Q4WEEKS
     Dates: start: 20160516
  5. DIPHENHYDRAMINE [Concomitant]
     Active Substance: DIPHENHYDRAMINE
  6. SYMBICORT [Concomitant]
     Active Substance: BUDESONIDE\FORMOTEROL FUMARATE DIHYDRATE
  7. EPINEPHRINE [Concomitant]
     Active Substance: EPINEPHRINE
  8. RELPAX [Concomitant]
     Active Substance: ELETRIPTAN HYDROBROMIDE
  9. QNASL [Concomitant]
     Active Substance: BECLOMETHASONE DIPROPIONATE
  10. ESTRADIOL [Concomitant]
     Active Substance: ESTRADIOL
  11. DEXILANT [Concomitant]
     Active Substance: DEXLANSOPRAZOLE
  12. GABAPENTIN [Concomitant]
     Active Substance: GABAPENTIN
  13. ACETAMINOPHEN [Concomitant]
     Active Substance: ACETAMINOPHEN
  14. CANDESARTAN CILEXETIL\HYDROCHLOROTHIAZIDE [Concomitant]
     Active Substance: CANDESARTAN CILEXETIL\HYDROCHLOROTHIAZIDE
  15. SYNTHROID [Concomitant]
     Active Substance: LEVOTHYROXINE SODIUM
  16. CIPROFLOXACIN HYDROCHLORIDE [Concomitant]
     Active Substance: CIPROFLOXACIN HYDROCHLORIDE
  17. MUPIROCIN [Concomitant]
     Active Substance: MUPIROCIN
  18. PROGESTERONE [Concomitant]
     Active Substance: PROGESTERONE
  19. Lmx [Concomitant]
  20. ADDERALL [Concomitant]
     Active Substance: AMPHETAMINE ASPARTATE\AMPHETAMINE SULFATE\DEXTROAMPHETAMINE SACCHARATE\DEXTROAMPHETAMINE SULFATE
  21. CYMBALTA [Concomitant]
     Active Substance: DULOXETINE HYDROCHLORIDE
  22. MECLIZINE [Concomitant]
     Active Substance: MECLIZINE HYDROCHLORIDE
  23. FORTEO [Concomitant]
     Active Substance: TERIPARATIDE
  24. AZITHROMYCIN [Concomitant]
     Active Substance: AZITHROMYCIN
  25. PENICILLIN V [Concomitant]
     Active Substance: PENICILLIN V
  26. ZANTAC [Concomitant]
     Active Substance: RANITIDINE HYDROCHLORIDE
  27. CLINDAMYCIN [Concomitant]
     Active Substance: CLINDAMYCIN
  28. DICYCLOMINE [Concomitant]
     Active Substance: DICYCLOMINE HYDROCHLORIDE
  29. VISTARIL [Concomitant]
     Active Substance: HYDROXYZINE PAMOATE
  30. DULERA [Concomitant]
     Active Substance: FORMOTEROL FUMARATE DIHYDRATE\MOMETASONE FUROATE
  31. LEVOTHYROXINE [Concomitant]
     Active Substance: LEVOTHYROXINE
  32. VITAMIN C [Concomitant]
     Active Substance: ASCORBIC ACID
  33. VITAMIN B [Concomitant]
     Active Substance: VITAMIN B
  34. VITAMIN D3 [Concomitant]
     Active Substance: CHOLECALCIFEROL
  35. BENTYL [Concomitant]
     Active Substance: DICYCLOMINE HYDROCHLORIDE
  36. BENZALKONIUM CHLORIDE\SODIUM CHLORIDE [Concomitant]
     Active Substance: BENZALKONIUM CHLORIDE\SODIUM CHLORIDE
  37. DIPHENHYDRAMINE HYDROCHLORIDE [Concomitant]
     Active Substance: DIPHENHYDRAMINE HYDROCHLORIDE
  38. METHYLPREDNISOLONE [Concomitant]
     Active Substance: METHYLPREDNISOLONE
  39. MECLIZINE HYDROCHLORIDE [Concomitant]
     Active Substance: MECLIZINE HYDROCHLORIDE
  40. VITAMINS [Concomitant]
     Active Substance: VITAMINS

REACTIONS (34)
  - Colitis [Unknown]
  - Pharyngolaryngeal abscess [Unknown]
  - Syncope [Unknown]
  - Weight decreased [Unknown]
  - Nasopharyngitis [Unknown]
  - Scar [Unknown]
  - Bone density abnormal [Recovering/Resolving]
  - Infusion site abscess [Unknown]
  - Abscess [Unknown]
  - COVID-19 [Unknown]
  - Itching scar [Unknown]
  - Hordeolum [Unknown]
  - Blister [Unknown]
  - Bronchitis [Unknown]
  - Ear infection [Unknown]
  - Seasonal allergy [Unknown]
  - Multiple allergies [Unknown]
  - Insurance issue [Unknown]
  - Haemoglobin decreased [Unknown]
  - Full blood count decreased [Unknown]
  - Gastrointestinal disorder [Unknown]
  - Gastroenteritis viral [Unknown]
  - Wrong technique in device usage process [Unknown]
  - Product dose omission issue [Unknown]
  - Inappropriate schedule of product administration [Unknown]
  - Device occlusion [Unknown]
  - Sinusitis [Unknown]
  - Rhinorrhoea [Unknown]
  - Muscle spasms [Unknown]
  - Pain [Unknown]
  - Infusion site pruritus [Unknown]
  - Migraine [Unknown]
  - Pruritus [Unknown]
  - Diarrhoea [Unknown]

NARRATIVE: CASE EVENT DATE: 20200901
